FAERS Safety Report 9178828 (Version 1)
Quarter: 2013Q1

REPORT INFORMATION
  Report Type: Spontaneous
  Country: US (occurrence: US)
  Receive Date: 20130321
  Receipt Date: 20130321
  Transmission Date: 20140127
  Serious: Yes (Other)
  Sender: FDA-Public Use
  Company Number: US-ABBOTT-13P-163-1062103-00

PATIENT
  Age: 66 Year
  Sex: Female

DRUGS (1)
  1. HUMIRA [Suspect]
     Indication: PSORIASIS
     Dates: start: 201204, end: 201301

REACTIONS (4)
  - Parapsoriasis [Unknown]
  - Mycosis fungoides [Unknown]
  - Adult T-cell lymphoma/leukaemia [Unknown]
  - Skin lesion [Not Recovered/Not Resolved]
